FAERS Safety Report 21291472 (Version 1)
Quarter: 2022Q3

REPORT INFORMATION
  Report Type: Report from Study
  Country: MX (occurrence: MX)
  Receive Date: 20220903
  Receipt Date: 20220903
  Transmission Date: 20221027
  Serious: Yes (Other)
  Sender: FDA-Public Use
  Company Number: MX-NOVARTISPH-NVSC2022MX123473

PATIENT
  Age: 38 Year
  Sex: Female
  Weight: 59 kg

DRUGS (6)
  1. ENTRESTO [Suspect]
     Active Substance: SACUBITRIL\VALSARTAN
     Indication: Cardiac disorder
     Dosage: 0.5 DOSAGE FORM, BID (100 MG)
     Route: 048
     Dates: start: 20211122, end: 20220620
  2. ENTRESTO [Suspect]
     Active Substance: SACUBITRIL\VALSARTAN
     Dosage: 0.5 DOSAGE FORM
     Route: 048
  3. ENTRESTO [Suspect]
     Active Substance: SACUBITRIL\VALSARTAN
     Dosage: 2 DOSAGE FORM, BID (100 MG)
     Route: 048
     Dates: start: 20220621
  4. ACENOCOUMAROL [Concomitant]
     Active Substance: ACENOCOUMAROL
     Indication: Product used for unknown indication
     Dosage: UNK
     Route: 065
  5. WARFARIN [Concomitant]
     Active Substance: WARFARIN
     Indication: Product used for unknown indication
     Dosage: UNK
     Route: 065
  6. EVIPRESS [Concomitant]
     Indication: Product used for unknown indication
     Dosage: UNK
     Route: 065

REACTIONS (16)
  - Thrombosis [Recovered/Resolved]
  - Depression [Recovered/Resolved]
  - Suicidal ideation [Not Recovered/Not Resolved]
  - Self-injurious ideation [Unknown]
  - Blood potassium increased [Recovered/Resolved]
  - Feeling abnormal [Unknown]
  - Contusion [Recovered/Resolved with Sequelae]
  - Contusion [Not Recovered/Not Resolved]
  - Scar [Unknown]
  - Back pain [Recovering/Resolving]
  - Hypertension [Recovered/Resolved]
  - Tremor [Recovered/Resolved]
  - Affective disorder [Unknown]
  - Anaemia [Not Recovered/Not Resolved]
  - Wrong technique in product usage process [Recovered/Resolved]
  - Off label use [Unknown]

NARRATIVE: CASE EVENT DATE: 20211122
